FAERS Safety Report 10170399 (Version 1)
Quarter: 2014Q2

REPORT INFORMATION
  Report Type: Spontaneous
  Country: US (occurrence: US)
  Receive Date: 20140513
  Receipt Date: 20140513
  Transmission Date: 20141212
  Serious: No
  Sender: FDA-Public Use
  Company Number: US-UPSHER-SMITH LABORATORIES, INC.-14000734

PATIENT
  Sex: Female

DRUGS (2)
  1. KLOR-CON TABLETS [Suspect]
     Indication: HYPOKALAEMIA
     Dosage: UNK, UNK
     Route: 048
  2. MAXZIDE [Concomitant]
     Indication: MENIERE^S DISEASE
     Dosage: UNK

REACTIONS (1)
  - Blood potassium abnormal [Not Recovered/Not Resolved]
